FAERS Safety Report 7699111-7 (Version None)
Quarter: 2011Q3

REPORT INFORMATION
  Report Type: 
  Country: None (occurrence: None)
  Receive Date: 20110819
  Receipt Date: 20110808
  Transmission Date: 20111222
  Serious: Yes (Other)
  Sender: FDA-Public Use
  Company Number: US-GENENTECH-322943

PATIENT

DRUGS (4)
  1. RITUXIMAB [Suspect]
     Indication: BURKITT'S LYMPHOMA
     Dosage: UNK
     Route: 065
  2. VINCRISTINE [Suspect]
     Indication: BURKITT'S LYMPHOMA
     Dosage: 2 MG, UNK
     Route: 065
  3. METHOTREXATE [Suspect]
     Indication: BURKITT'S LYMPHOMA
     Dosage: 3000 MG/M2, UNK
     Route: 065
  4. CYCLOPHOSPHAMIDE [Suspect]
     Indication: BURKITT'S LYMPHOMA
     Dosage: 800 MG/M2, UNK
     Route: 065

REACTIONS (13)
  - INFECTION [None]
  - THROMBOSIS [None]
  - COAGULOPATHY [None]
  - LUNG INFILTRATION [None]
  - HAEMATOTOXICITY [None]
  - NEUTROPENIA [None]
  - THROMBOCYTOPENIA [None]
  - FEBRILE NEUTROPENIA [None]
  - METABOLIC DISORDER [None]
  - NERVOUS SYSTEM DISORDER [None]
  - ENCEPHALOPATHY [None]
  - TUMOUR LYSIS SYNDROME [None]
  - HEMIPARESIS [None]
